FAERS Safety Report 11887801 (Version 1)
Quarter: 2016Q1

REPORT INFORMATION
  Report Type: Report from Study
  Country: US (occurrence: US)
  Receive Date: 20160105
  Receipt Date: 20160105
  Transmission Date: 20160526
  Serious: Yes (Hospitalization)
  Sender: FDA-Public Use
  Company Number: US-ROCHE-1675923

PATIENT
  Age: 55 Year
  Sex: Female
  Weight: 56 kg

DRUGS (8)
  1. INTEGRA [Concomitant]
     Indication: ANAEMIA
     Route: 065
     Dates: start: 2013
  2. LISINOPRIL/HCTZ [Concomitant]
     Active Substance: HYDROCHLOROTHIAZIDE\LISINOPRIL
     Indication: HYPERTENSION
     Route: 065
     Dates: start: 2013
  3. TRASTUZUMAB [Suspect]
     Active Substance: TRASTUZUMAB
     Indication: UTERINE CANCER
     Dosage: LOADING DOSE  (SINGLE DOSE)?DATE OF LAST DOSE PRIOR TO SAE : 18/NOV/2015
     Route: 042
     Dates: start: 20151118, end: 20151118
  4. ALLOPURINOL. [Concomitant]
     Active Substance: ALLOPURINOL
     Indication: GOUT
     Route: 065
     Dates: start: 201509
  5. ALPHA LIPOIC ACID [Concomitant]
     Active Substance: .ALPHA.-LIPOIC ACID
     Route: 065
     Dates: start: 2013
  6. OXYCONTIN [Concomitant]
     Active Substance: OXYCODONE HYDROCHLORIDE
     Indication: ARTHRALGIA
     Route: 065
     Dates: start: 201507
  7. PERTUZUMAB [Suspect]
     Active Substance: PERTUZUMAB
     Indication: UTERINE CANCER
     Dosage: LOADING DOSE (SINGLE DOSE)
     Route: 042
     Dates: start: 20151118, end: 20151118
  8. OXYCODONE [Concomitant]
     Active Substance: OXYCODONE
     Indication: ARTHRALGIA
     Route: 065
     Dates: start: 201507

REACTIONS (1)
  - Joint effusion [Recovered/Resolved]

NARRATIVE: CASE EVENT DATE: 20151201
